FAERS Safety Report 9531132 (Version 2)
Quarter: 2013Q3

REPORT INFORMATION
  Report Type: Spontaneous
  Country: JP (occurrence: JP)
  Receive Date: 20130918
  Receipt Date: 20130918
  Transmission Date: 20140515
  Serious: Yes (Death)
  Sender: FDA-Public Use
  Company Number: PHHY2013JP060304

PATIENT
  Sex: 0

DRUGS (3)
  1. SANDOSTATIN [Suspect]
     Indication: CHYLOTHORAX
     Dosage: UNK UKN, UNK
     Route: 058
  2. SANDOSTATIN [Suspect]
     Dosage: UNK
     Dates: start: 20130607
  3. SANDOSTATIN [Suspect]
     Dosage: 30 DF, DAILY
     Route: 058

REACTIONS (2)
  - Death [Fatal]
  - Overdose [Unknown]
